FAERS Safety Report 5584291-X (Version None)
Quarter: 2008Q1

REPORT INFORMATION
  Report Type: 
  Country: None (occurrence: None)
  Receive Date: 20080108
  Receipt Date: 20071231
  Transmission Date: 20080703
  Serious: Yes (Hospitalization)
  Sender: FDA-Public Use
  Company Number: B0501707A

PATIENT
  Age: 38 Year
  Sex: Female

DRUGS (1)
  1. NARAMIG [Suspect]
     Indication: MIGRAINE
     Route: 048
     Dates: start: 20070101, end: 20071105

REACTIONS (11)
  - ANXIETY [None]
  - FEELING HOT [None]
  - HYPOTENSION [None]
  - MALAISE [None]
  - MIGRAINE [None]
  - MYALGIA [None]
  - PARAESTHESIA [None]
  - PHLEBITIS [None]
  - PULMONARY EMBOLISM [None]
  - TRANSAMINASES INCREASED [None]
  - VOMITING [None]
